FAERS Safety Report 8436860-7 (Version None)
Quarter: 2012Q2

REPORT INFORMATION
  Report Type: 
  Country: None (occurrence: None)
  Receive Date: 20120323
  Receipt Date: 20110706
  Transmission Date: 20120825
  Serious: Yes (Other)
  Sender: FDA-Public Use
  Company Number: 163-21880-11070801

PATIENT
  Sex: Male
  Weight: 90.7194 kg

DRUGS (9)
  1. TRICOR [Concomitant]
  2. SYNTHROID [Concomitant]
  3. LANTUS [Concomitant]
  4. WELCHOL [Concomitant]
  5. REVLIMID [Suspect]
     Indication: MULTIPLE MYELOMA
     Dosage: 15 MG, DAILY FOR 14 DAYS, PO
     Route: 048
     Dates: start: 20100801
  6. LISINOPRIL [Concomitant]
  7. ISOSORBIDE(ISOSORBIDE) [Concomitant]
  8. GLYCOSIDE [Concomitant]
  9. NOVOLOG [Concomitant]

REACTIONS (1)
  - DEEP VEIN THROMBOSIS [None]
